FAERS Safety Report 23323248 (Version 1)
Quarter: 2023Q4

REPORT INFORMATION
  Report Type: Spontaneous
  Country: US (occurrence: None)
  Receive Date: 20231220
  Receipt Date: 20231220
  Transmission Date: 20240109
  Serious: No
  Sender: FDA-Public Use
  Company Number: US-ROCHE-3356333

PATIENT
  Sex: Female

DRUGS (1)
  1. RITUXAN [Suspect]
     Active Substance: RITUXIMAB
     Indication: Osteoarthritis
     Dosage: INFUSE 1000,MG IN 250ML, OF NS INTRAVENOUSLY OVER 3 HOURS ON DAYS1 AND 15
     Route: 042

REACTIONS (1)
  - Drug hypersensitivity [Unknown]
